FAERS Safety Report 23570634 (Version 1)
Quarter: 2024Q1

REPORT INFORMATION
  Report Type: Spontaneous
  Country: CO (occurrence: CO)
  Receive Date: 20240227
  Receipt Date: 20240227
  Transmission Date: 20240410
  Serious: Yes (Hospitalization)
  Sender: FDA-Public Use
  Company Number: CO-002147023-NVSC2020CO271987

PATIENT
  Age: 10 Year
  Sex: Female
  Weight: 29 kg

DRUGS (4)
  1. MONTELUKAST [Suspect]
     Active Substance: MONTELUKAST SODIUM
     Indication: Asthma
     Dosage: 5 MG, QD
     Route: 048
  2. XOLAIR [Suspect]
     Active Substance: OMALIZUMAB
     Dosage: 200 MG, Q2W
     Route: 058
     Dates: start: 2019, end: 20230525
  3. XOLAIR [Suspect]
     Active Substance: OMALIZUMAB
     Indication: Asthma
     Dosage: 225 MG, Q2W, APPROXIMATELY 1 YEAR AGO
     Route: 058
  4. FLUTICASONE [Concomitant]
     Active Substance: FLUTICASONE
     Indication: Asthma
     Dosage: 1 DOSAGE FORM PUFF, EVERY 12 HOURS
     Route: 048

REACTIONS (9)
  - Asthma [Not Recovered/Not Resolved]
  - Suspected COVID-19 [Unknown]
  - Vomiting [Recovered/Resolved]
  - Headache [Recovered/Resolved]
  - Illness [Unknown]
  - Drug ineffective [Unknown]
  - Ovarian cyst [Unknown]
  - Headache [Unknown]
  - Ear infection [Unknown]

NARRATIVE: CASE EVENT DATE: 20201001
